FAERS Safety Report 8349580-4 (Version None)
Quarter: 2012Q2

REPORT INFORMATION
  Report Type: 
  Country: None (occurrence: None)
  Receive Date: 20120510
  Receipt Date: 20120427
  Transmission Date: 20120825
  Serious: Yes (Other)
  Sender: FDA-Public Use
  Company Number: JP-UCBSA-056571

PATIENT
  Age: 43 Year
  Sex: Female

DRUGS (2)
  1. VIDARABINE [Concomitant]
     Route: 061
  2. XYZAL [Suspect]
     Indication: RHINITIS ALLERGIC
     Route: 048
     Dates: start: 20120426

REACTIONS (5)
  - HYPERVENTILATION [None]
  - FEELING COLD [None]
  - PYREXIA [None]
  - CONVULSION [None]
  - C-REACTIVE PROTEIN INCREASED [None]
